FAERS Safety Report 8947550 (Version 2)
Quarter: 2015Q2

REPORT INFORMATION
  Report Type: Report from Study
  Country: FR (occurrence: FR)
  Receive Date: 20121204
  Receipt Date: 20150414
  Transmission Date: 20150821
  Serious: Yes (Hospitalization)
  Sender: FDA-Public Use
  Company Number: FR-ROCHE-1162731

PATIENT
  Age: 48 Year
  Sex: Female

DRUGS (21)
  1. RITUXIMAB [Suspect]
     Active Substance: RITUXIMAB
     Dosage: D15
     Route: 041
     Dates: start: 20080310
  2. RITUXIMAB [Suspect]
     Active Substance: RITUXIMAB
     Route: 041
     Dates: start: 20081216
  3. RITUXIMAB [Suspect]
     Active Substance: RITUXIMAB
     Dosage: D15
     Route: 041
     Dates: start: 20100208
  4. RITUXIMAB [Suspect]
     Active Substance: RITUXIMAB
     Dosage: D1
     Route: 041
     Dates: start: 20140603
  5. RITUXIMAB [Suspect]
     Active Substance: RITUXIMAB
     Dosage: D1
     Route: 041
     Dates: start: 20081127
  6. RITUXIMAB [Suspect]
     Active Substance: RITUXIMAB
     Dosage: D1
     Route: 041
     Dates: start: 20100125
  7. RITUXIMAB [Suspect]
     Active Substance: RITUXIMAB
     Dosage: D15
     Route: 041
     Dates: start: 20110405
  8. RITUXIMAB [Suspect]
     Active Substance: RITUXIMAB
     Dosage: D15
     Route: 041
     Dates: start: 20111118
  9. RITUXIMAB [Suspect]
     Active Substance: RITUXIMAB
     Dosage: D1
     Route: 041
     Dates: start: 20130527
  10. RITUXIMAB [Suspect]
     Active Substance: RITUXIMAB
     Dosage: D15
     Route: 041
     Dates: start: 20131212
  11. METHOTREXATE [Concomitant]
     Active Substance: METHOTREXATE
     Route: 065
  12. RITUXIMAB [Suspect]
     Active Substance: RITUXIMAB
     Dosage: D1
     Route: 041
     Dates: start: 20110323
  13. RITUXIMAB [Suspect]
     Active Substance: RITUXIMAB
     Dosage: D15
     Route: 041
     Dates: start: 20130701
  14. RITUXIMAB [Suspect]
     Active Substance: RITUXIMAB
     Dosage: D1
     Route: 041
     Dates: start: 20131128
  15. RITUXIMAB [Suspect]
     Active Substance: RITUXIMAB
     Dosage: D15
     Route: 041
     Dates: start: 20140617
  16. METHOTREXATE [Concomitant]
     Active Substance: METHOTREXATE
     Route: 065
  17. METHOTREXATE [Concomitant]
     Active Substance: METHOTREXATE
     Route: 065
  18. RITUXIMAB [Suspect]
     Active Substance: RITUXIMAB
     Dosage: SINGLE INFUSION
     Route: 041
     Dates: start: 20121120
  19. RITUXIMAB [Suspect]
     Active Substance: RITUXIMAB
     Indication: RHEUMATOID ARTHRITIS
     Dosage: D1
     Route: 041
     Dates: start: 20080219
  20. RITUXIMAB [Suspect]
     Active Substance: RITUXIMAB
     Dosage: D1
     Route: 041
     Dates: start: 20111104
  21. RITUXIMAB [Suspect]
     Active Substance: RITUXIMAB
     Dosage: SINGLE INFUSION
     Route: 041
     Dates: start: 20120510

REACTIONS (5)
  - Urinary tract infection bacterial [Recovered/Resolved]
  - Diabetes mellitus inadequate control [Recovered/Resolved]
  - Squamous cell carcinoma [Not Recovered/Not Resolved]
  - Irritability [Recovered/Resolved]
  - Hyperphagia [Recovered/Resolved]

NARRATIVE: CASE EVENT DATE: 200904
